FAERS Safety Report 9358778 (Version 2)
Quarter: 2013Q4

REPORT INFORMATION
  Report Type: Spontaneous
  Country: GB (occurrence: GB)
  Receive Date: 20130620
  Receipt Date: 20131031
  Transmission Date: 20140711
  Serious: Yes (Disabling)
  Sender: FDA-Public Use
  Company Number: GB-ALLERGAN-1205726US

PATIENT
  Age: 35 Year
  Sex: Female

DRUGS (1)
  1. BOTOX [Suspect]
     Indication: SKIN WRINKLING
     Dosage: 16 UNITS, SINGLE
     Route: 030
     Dates: start: 20120416, end: 20120416

REACTIONS (16)
  - Movement disorder [Recovered/Resolved]
  - Neck pain [Recovered/Resolved]
  - Musculoskeletal stiffness [Recovered/Resolved]
  - Oropharyngeal pain [Recovered/Resolved]
  - Musculoskeletal stiffness [Recovered/Resolved]
  - Hyperhidrosis [Recovered/Resolved]
  - Pain [Recovered/Resolved]
  - Influenza like illness [Recovered/Resolved]
  - Myalgia [Recovered/Resolved]
  - Malaise [Recovered/Resolved]
  - Malaise [Recovered/Resolved]
  - Dysphagia [Recovered/Resolved]
  - Hypoaesthesia [Recovered/Resolved]
  - Pyrexia [Recovered/Resolved]
  - Headache [Unknown]
  - Muscular weakness [Recovered/Resolved]
